FAERS Safety Report 19958924 (Version 1)
Quarter: 2021Q4

REPORT INFORMATION
  Report Type: Spontaneous
  Country: US (occurrence: US)
  Receive Date: 20211012
  Receipt Date: 20211012
  Transmission Date: 20220304
  Serious: No
  Sender: FDA-Public Use
  Company Number: None

PATIENT

DRUGS (1)
  1. PROPOFOL [Suspect]
     Active Substance: PROPOFOL

REACTIONS (10)
  - Blood pressure decreased [None]
  - Oxygen saturation decreased [None]
  - Heart rate decreased [None]
  - Pulseless electrical activity [None]
  - Cardiac arrest [None]
  - Cardio-respiratory arrest [None]
  - Incorrect drug administration rate [None]
  - Wrong technique in device usage process [None]
  - Hypervolaemia [None]
  - Creatinine renal clearance increased [None]
